FAERS Safety Report 5229234-3 (Version None)
Quarter: 2007Q1

REPORT INFORMATION
  Report Type: 
  Country: None (occurrence: None)
  Receive Date: 20061201
  Receipt Date: 20060810
  Transmission Date: 20070707
  Serious: No
  Sender: FDA-Public Use
  Company Number: US200608001010

PATIENT
  Age: 42 Year
  Sex: Female

DRUGS (3)
  1. CYMBALTA [Suspect]
     Indication: DEPRESSION
     Dosage: 60 MG, DAILY (1/D)
     Dates: start: 20050101
  2. KLONOPIN [Concomitant]
  3. SOMA [Concomitant]

REACTIONS (5)
  - ANXIETY [None]
  - BLOOD PRESSURE INCREASED [None]
  - DEPRESSION [None]
  - HEART RATE INCREASED [None]
  - INSOMNIA [None]
